FAERS Safety Report 7962631-1 (Version None)
Quarter: 2011Q4

REPORT INFORMATION
  Report Type: 
  Country: None (occurrence: None)
  Receive Date: 20111207
  Receipt Date: 20111130
  Transmission Date: 20120403
  Serious: Yes (Other)
  Sender: FDA-Public Use
  Company Number: US-BRISTOL-MYERS SQUIBB COMPANY-16262420

PATIENT
  Age: 10 Year
  Sex: Male
  Weight: 45 kg

DRUGS (9)
  1. GUANFACINE HYDROCHLORIDE [Concomitant]
     Indication: ATTENTION DEFICIT/HYPERACTIVITY DISORDER
     Dosage: FORM: TAB
     Route: 048
  2. ADDERALL 5 [Suspect]
     Indication: ATTENTION DEFICIT/HYPERACTIVITY DISORDER
  3. CONCERTA [Concomitant]
     Indication: ATTENTION DEFICIT/HYPERACTIVITY DISORDER
  4. TRAZODONE HCL [Concomitant]
     Indication: SLEEP DISORDER
  5. RISPERIDONE [Suspect]
     Indication: AFFECTIVE DISORDER
  6. ZOLOFT [Concomitant]
     Indication: GENERALISED ANXIETY DISORDER
  7. ABILIFY [Suspect]
     Indication: AFFECTIVE DISORDER
  8. RISPERIDONE [Suspect]
     Indication: GENERALISED ANXIETY DISORDER
  9. ABILIFY [Suspect]
     Indication: GENERALISED ANXIETY DISORDER

REACTIONS (3)
  - AGGRESSION [None]
  - HALLUCINATION [None]
  - WEIGHT INCREASED [None]
